FAERS Safety Report 18513017 (Version 1)
Quarter: 2020Q4

REPORT INFORMATION
  Report Type: Spontaneous
  Country: US (occurrence: US)
  Receive Date: 20201117
  Receipt Date: 20201117
  Transmission Date: 20210114
  Serious: No
  Sender: FDA-Public Use
  Company Number: US-PFIZER INC-2020449925

PATIENT
  Age: 63 Year
  Sex: Male
  Weight: 111.13 kg

DRUGS (3)
  1. LYRICA [Suspect]
     Active Substance: PREGABALIN
     Dosage: 300 MG, 2X/DAY
     Dates: start: 2019
  2. LYRICA [Suspect]
     Active Substance: PREGABALIN
     Indication: NEUROPATHY PERIPHERAL
     Dosage: 900 MG, DAILY (THREE OF THEM A DAY)
     Dates: end: 2019
  3. GABAPENTIN. [Concomitant]
     Active Substance: GABAPENTIN
     Indication: NEUROPATHY PERIPHERAL
     Dosage: UNK

REACTIONS (5)
  - Intentional product use issue [Unknown]
  - Poor quality sleep [Unknown]
  - Drug ineffective [Unknown]
  - Sensitivity to weather change [Unknown]
  - Overdose [Unknown]
